FAERS Safety Report 21980409 (Version 2)
Quarter: 2023Q4

REPORT INFORMATION
  Report Type: Report from Study
  Country: US (occurrence: US)
  Receive Date: 20230211
  Receipt Date: 20231021
  Transmission Date: 20240109
  Serious: No
  Sender: FDA-Public Use
  Company Number: US-002147023-NVSC2023US028854

PATIENT
  Sex: Male
  Weight: 102.04 kg

DRUGS (2)
  1. LEQVIO [Suspect]
     Active Substance: INCLISIRAN SODIUM
     Indication: Product used for unknown indication
     Dosage: UNK
     Route: 058
  2. LEQVIO [Suspect]
     Active Substance: INCLISIRAN SODIUM
     Dosage: 284 MILLIGRAM PER MILLILITRE, OTHER
     Route: 058
     Dates: start: 20231010, end: 20231010

REACTIONS (1)
  - Injection site pain [Recovered/Resolved]
